FAERS Safety Report 7164857-6 (Version None)
Quarter: 2010Q4

REPORT INFORMATION
  Report Type: 
  Country: None (occurrence: None)
  Receive Date: 20101215
  Receipt Date: 20091214
  Transmission Date: 20110411
  Serious: No
  Sender: FDA-Public Use
  Company Number: US-AMGEN-KDL380218

PATIENT

DRUGS (5)
  1. ENBREL [Suspect]
     Indication: PSORIASIS
     Dosage: 50 MG, QWK
     Dates: start: 20040101
  2. LABETALOL HCL [Concomitant]
     Dosage: UNK UNK, UNK
  3. LISINOPRIL [Concomitant]
     Dosage: UNK UNK, UNK
  4. AMLODIPINE BESYLATE [Concomitant]
  5. LANSOPRAZOLE [Concomitant]

REACTIONS (2)
  - BLOOD CREATINE PHOSPHOKINASE INCREASED [None]
  - MYALGIA [None]
